FAERS Safety Report 16804676 (Version 1)
Quarter: 2019Q3

REPORT INFORMATION
  Report Type: Spontaneous
  Country: US (occurrence: US)
  Receive Date: 20190913
  Receipt Date: 20190913
  Transmission Date: 20191005
  Serious: Yes (Other)
  Sender: FDA-Public Use
  Company Number: US-UNICHEM PHARMACEUTICALS (USA) INC-UCM201909-000439

PATIENT
  Age: 65 Year
  Sex: Female

DRUGS (5)
  1. OMNIPAQUE [Concomitant]
     Active Substance: IOHEXOL
     Indication: BACK PAIN
     Dosage: LUMBAR EPIDURAL GLUCOCORTICOID INJECTION OMNIPAQUE 300 MG IODINE PER ML INTRAVENOUS SOLUTION
     Route: 042
  2. LIDOCAINE. [Concomitant]
     Active Substance: LIDOCAINE
     Indication: BACK PAIN
     Dosage: LUMBAR EPIDURAL GLUCOCORTICOID INJECTION 5 PERCENTAGE LIDOCAINE 5 ML
  3. METHYLPREDNISOLONE. [Concomitant]
     Active Substance: METHYLPREDNISOLONE
     Indication: BACK PAIN
     Dosage: LUMBAR EPIDURAL GLUCOCORTICOID INJECTION METHYLPREDNISOLONE 80 MG
  4. TOPIRAMATE. [Suspect]
     Active Substance: TOPIRAMATE
     Indication: BACK PAIN
     Dosage: 25 MG IMMEDIATE RELEASE FORMULATION EVERY EVENING/ONE MONTH AFTER SURGERY, THE TOPIRAMATE DOSE WAS D
  5. TOPIRAMATE. [Suspect]
     Active Substance: TOPIRAMATE
     Dosage: 50 MG GIVEN AT NIGHT

REACTIONS (4)
  - Drug withdrawal syndrome [Recovered/Resolved]
  - Tremor [Recovered/Resolved]
  - Myalgia [Recovered/Resolved]
  - Drug dependence [Recovered/Resolved]
